FAERS Safety Report 9318885 (Version 1)
Quarter: 2013Q2

REPORT INFORMATION
  Report Type: Spontaneous
  Country: CN (occurrence: None)
  Receive Date: 20130524
  Receipt Date: 20130524
  Transmission Date: 20140414
  Serious: Yes (Death)
  Sender: FDA-Public Use
  Company Number: CC400180517

PATIENT
  Age: 53 Year
  Sex: Female

DRUGS (1)
  1. CEFTRIAXONE FOR INJECTION (+) DEXTROSE INJECTION [Suspect]

REACTIONS (2)
  - Renal failure [None]
  - Haemolysis [None]
